FAERS Safety Report 23804419 (Version 1)
Quarter: 2024Q2

REPORT INFORMATION
  Report Type: Spontaneous
  Country: US (occurrence: None)
  Receive Date: 20240501
  Receipt Date: 20240501
  Transmission Date: 20240716
  Serious: Yes (Hospitalization)
  Sender: FDA-Public Use
  Company Number: None

PATIENT
  Age: 65 Year
  Sex: Male

DRUGS (1)
  1. BACLOFEN [Suspect]
     Active Substance: BACLOFEN
     Indication: Muscle spasms
     Dosage: FREQUENCY : 3 TIMES A DAY;?

REACTIONS (3)
  - Accidental overdose [None]
  - Hyperglycaemia [None]
  - Mental status changes [None]

NARRATIVE: CASE EVENT DATE: 20230202
